FAERS Safety Report 4631508-1 (Version None)
Quarter: 2005Q2

REPORT INFORMATION
  Report Type: 
  Country: None (occurrence: None)
  Receive Date: 20050407
  Receipt Date: 20050322
  Transmission Date: 20051028
  Serious: Yes (Hospitalization)
  Sender: FDA-Public Use
  Company Number: CH-2004-033384

PATIENT
  Age: 47 Year
  Sex: Male

DRUGS (2)
  1. BETAFERON (INTERFERON BETA - 1B) INJECTION, 250UG [Suspect]
     Indication: MULTIPLE SCLEROSIS
     Dosage: SUBCUTANEOUS
     Route: 058
     Dates: start: 19980909, end: 20040804
  2. ZOLOFT [Concomitant]

REACTIONS (5)
  - INJECTION SITE ABSCESS [None]
  - INJECTION SITE ABSCESS STERILE [None]
  - INJECTION SITE DERMATITIS [None]
  - PYREXIA [None]
  - SKIN LESION [None]
